FAERS Safety Report 4809983-9 (Version None)
Quarter: 2005Q4

REPORT INFORMATION
  Report Type: 
  Country: None (occurrence: None)
  Receive Date: 20051024
  Receipt Date: 20051024
  Transmission Date: 20060501
  Serious: Yes (Other)
  Sender: FDA-Public Use
  Company Number: None

PATIENT
  Age: 83 Year
  Sex: Female

DRUGS (2)
  1. HYDROMORPHONE   2 MG IV     UNKNOWN [Suspect]
     Indication: ANALGESIC EFFECT
     Dosage: 2 MG   ONCE   IV BOLUS    (GIVEN ONE TIME)
     Route: 040
  2. HYDROMORPHONE   2 MG IV     UNKNOWN [Suspect]
     Indication: WRIST FRACTURE
     Dosage: 2 MG   ONCE   IV BOLUS    (GIVEN ONE TIME)
     Route: 040

REACTIONS (3)
  - FEELING ABNORMAL [None]
  - HYPERHIDROSIS [None]
  - NAUSEA [None]
